FAERS Safety Report 5595901-5 (Version None)
Quarter: 2008Q1

REPORT INFORMATION
  Report Type: 
  Country: None (occurrence: None)
  Receive Date: 20080118
  Receipt Date: 20080111
  Transmission Date: 20080703
  Serious: Yes (Hospitalization, Disabling)
  Sender: FDA-Public Use
  Company Number: PHRM2007FR01135

PATIENT
  Age: 69 Year
  Sex: Male

DRUGS (4)
  1. ZOMETA [Suspect]
     Indication: METASTASES TO BONE
     Dosage: 6 COURSES OF 4 MG
     Route: 042
     Dates: start: 20050701, end: 20050930
  2. TAXOTERE [Concomitant]
     Dosage: 6 COURSES
     Dates: start: 20051017, end: 20060131
  3. CORTICOSTEROIDS [Concomitant]
  4. NOVANTRONE [Concomitant]
     Dosage: EVERY 3 WEEKS
     Dates: start: 20060810, end: 20061102

REACTIONS (5)
  - COMPUTERISED TOMOGRAM ABNORMAL [None]
  - DEBRIDEMENT [None]
  - OSTEOMYELITIS [None]
  - OSTEONECROSIS [None]
  - TOOTH EXTRACTION [None]
